FAERS Safety Report 4652467-1 (Version None)
Quarter: 2005Q2

REPORT INFORMATION
  Report Type: 
  Country: None (occurrence: None)
  Receive Date: 20050502
  Receipt Date: 20050414
  Transmission Date: 20051028
  Serious: Yes (Hospitalization)
  Sender: FDA-Public Use
  Company Number: ATO-05-0129

PATIENT
  Age: 89 Year
  Sex: Female

DRUGS (8)
  1. TRISENOX [Suspect]
     Indication: MYELODYSPLASTIC SYNDROME
     Dosage: 23 MG (23 MG, Q2WKS), IVI
     Route: 042
     Dates: start: 20050215, end: 20050407
  2. THALIDOMID [Suspect]
     Indication: MYELODYSPLASTIC SYNDROME
     Dosage: 100 MG (100 MG, DAILY), ORAL
     Route: 048
     Dates: start: 20050215, end: 20050411
  3. LASIX [Concomitant]
  4. ASPIRIN [Concomitant]
  5. POTASSIUM CHLORIDE [Concomitant]
  6. ALOXI [Concomitant]
  7. ARANESP [Concomitant]
  8. OXYCODONE HCL [Concomitant]

REACTIONS (5)
  - CARDIAC FAILURE CONGESTIVE [None]
  - COUGH [None]
  - LUNG INFILTRATION [None]
  - PNEUMONIA VIRAL [None]
  - PULMONARY OEDEMA [None]
